FAERS Safety Report 24230301 (Version 2)
Quarter: 2024Q3

REPORT INFORMATION
  Report Type: Report from Study
  Country: CO (occurrence: CO)
  Receive Date: 20240821
  Receipt Date: 20240826
  Transmission Date: 20241017
  Serious: Yes (Hospitalization, Other)
  Sender: ABBVIE
  Company Number: CO-ABBVIE-5883974

PATIENT
  Sex: Male

DRUGS (5)
  1. VENETOCLAX [Suspect]
     Active Substance: VENETOCLAX
     Indication: Acute myeloid leukaemia
     Route: 048
     Dates: start: 20240510
  2. CEFEPIME [Concomitant]
     Active Substance: CEFEPIME HYDROCHLORIDE
     Indication: Epididymitis
     Dates: start: 20240526, end: 20240531
  3. AMPICILLIN [Concomitant]
     Active Substance: AMPICILLIN
     Indication: Epididymitis
     Dates: start: 20240526, end: 20240614
  4. AZACITIDINE [Concomitant]
     Active Substance: AZACITIDINE
     Indication: Acute myeloid leukaemia
     Dates: start: 20240510
  5. MEROPENEM [Concomitant]
     Active Substance: MEROPENEM
     Indication: Culture urine positive
     Dates: start: 20240531, end: 20240614

REACTIONS (8)
  - Epididymitis [Recovered/Resolved]
  - Enterococcus test positive [Recovered/Resolved]
  - Klebsiella test positive [Recovered/Resolved]
  - C-reactive protein decreased [Recovered/Resolved]
  - Proteus test positive [Recovered/Resolved]
  - Bladder spasm [Recovered/Resolved]
  - Dysuria [Recovered/Resolved]
  - Penile pain [Recovered/Resolved]

NARRATIVE: CASE EVENT DATE: 20240524
